FAERS Safety Report 7940437-7 (Version None)
Quarter: 2011Q4

REPORT INFORMATION
  Report Type: 
  Country: None (occurrence: None)
  Receive Date: 20111128
  Receipt Date: 20111119
  Transmission Date: 20120403
  Serious: Yes (Hospitalization, Other)
  Sender: FDA-Public Use
  Company Number: US-BRISTOL-MYERS SQUIBB COMPANY-15022155

PATIENT
  Age: 69 Year
  Sex: Male
  Weight: 91 kg

DRUGS (2)
  1. ACETAMINOPHEN [Concomitant]
     Indication: PYREXIA
     Dosage: ORAL Q4H PRN
     Route: 048
  2. IPILIMUMAB [Suspect]
     Indication: MALIGNANT MELANOMA
     Dosage: LAST TREATMENT ON 16FEB2010;NO.OF COURSES:09 15APR08:16FEB2010 16FEB10:890MG:13
     Route: 042
     Dates: start: 20080415, end: 20100216

REACTIONS (3)
  - ABDOMINAL DISTENSION [None]
  - DEVICE RELATED INFECTION [None]
  - UVEITIS [None]
